FAERS Safety Report 23196255 (Version 4)
Quarter: 2024Q3

REPORT INFORMATION
  Report Type: Spontaneous
  Country: US (occurrence: US)
  Receive Date: 20231117
  Receipt Date: 20240806
  Transmission Date: 20241016
  Serious: Yes (Hospitalization)
  Sender: UCB
  Company Number: US-UCBSA-2023054518

PATIENT
  Age: 71 Year
  Sex: Female
  Weight: 76.65 kg

DRUGS (2)
  1. CIMZIA [Suspect]
     Active Substance: CERTOLIZUMAB PEGOL
     Indication: Rheumatoid arthritis
     Dosage: 400 MILLIGRAM, EV 4 WEEKS
     Route: 058
     Dates: start: 202209
  2. CIMZIA [Suspect]
     Active Substance: CERTOLIZUMAB PEGOL
     Dosage: 400 MILLIGRAM (2 SYRINGES), EV 4 WEEKS
     Route: 058
     Dates: start: 202403

REACTIONS (4)
  - Infection [Not Recovered/Not Resolved]
  - Hospitalisation [Unknown]
  - Sinus disorder [Unknown]
  - Asthma [Unknown]

NARRATIVE: CASE EVENT DATE: 20231001
